FAERS Safety Report 9882752 (Version 2)
Quarter: 2014Q1

REPORT INFORMATION
  Report Type: Spontaneous
  Country: US (occurrence: US)
  Receive Date: 20140207
  Receipt Date: 20140225
  Transmission Date: 20141002
  Serious: No
  Sender: FDA-Public Use
  Company Number: US-TEVA-460816USA

PATIENT
  Age: 84 Year
  Sex: Male
  Weight: 80.81 kg

DRUGS (7)
  1. PROAIR HFA [Suspect]
     Indication: INCREASED UPPER AIRWAY SECRETION
     Route: 055
     Dates: start: 201401, end: 201401
  2. METFORMIN [Concomitant]
     Indication: DIABETES MELLITUS
  3. GLYBURIDE [Concomitant]
     Indication: DIABETES MELLITUS
  4. ASPIRIN [Concomitant]
  5. VITAMINS [Concomitant]
  6. COLESTIPOL [Concomitant]
     Indication: GASTROINTESTINAL DISORDER
  7. COLESTIPOL [Concomitant]
     Indication: BLOOD CHOLESTEROL

REACTIONS (2)
  - Chest discomfort [Recovered/Resolved]
  - Chest discomfort [Recovered/Resolved]
